FAERS Safety Report 17759563 (Version 3)
Quarter: 2020Q2

REPORT INFORMATION
  Report Type: Spontaneous
  Country: US (occurrence: US)
  Receive Date: 20200508
  Receipt Date: 20200604
  Transmission Date: 20200714
  Serious: No
  Sender: FDA-Public Use
  Company Number: US-ASTRAZENECA-2020SE54981

PATIENT
  Sex: Female
  Weight: 71.2 kg

DRUGS (17)
  1. ASPIRIN. [Concomitant]
     Active Substance: ASPIRIN
     Dosage: 81.0MG UNKNOWN
     Route: 065
  2. DEXILANT [Concomitant]
     Active Substance: DEXLANSOPRAZOLE
     Indication: GASTRIC DISORDER
     Route: 065
  3. ALPRAZOLAM. [Concomitant]
     Active Substance: ALPRAZOLAM
     Indication: NERVOUS SYSTEM DISORDER
     Route: 048
  4. BYDUREON BCISE [Suspect]
     Active Substance: EXENATIDE
     Indication: TYPE 2 DIABETES MELLITUS
     Route: 058
  5. CARVEDILOL. [Concomitant]
     Active Substance: CARVEDILOL
     Route: 065
  6. GLIPIZIDE. [Concomitant]
     Active Substance: GLIPIZIDE
     Route: 065
  7. VITAMINS C [Concomitant]
  8. MIRALAX [Suspect]
     Active Substance: POLYETHYLENE GLYCOL 3350
     Route: 065
     Dates: start: 20200505
  9. BRILINTA [Suspect]
     Active Substance: TICAGRELOR
     Indication: STENT PLACEMENT
     Route: 048
     Dates: start: 201911
  10. ROSUVASTATIN CALCIUM. [Suspect]
     Active Substance: ROSUVASTATIN CALCIUM
     Indication: BLOOD CHOLESTEROL
     Route: 048
  11. METFORMIN [Suspect]
     Active Substance: METFORMIN HYDROCHLORIDE
     Route: 065
  12. MULTIVITAMIN [Concomitant]
     Active Substance: VITAMINS
     Route: 065
  13. TRESIBA [Concomitant]
     Active Substance: INSULIN DEGLUDEC
     Dosage: 17 UNITS OF TRESIBA BUT IS NOW TAKING TRESIBA 12 UNITS
     Route: 065
  14. GLIPIZIDE. [Concomitant]
     Active Substance: GLIPIZIDE
     Route: 065
  15. NIFEDIPINE. [Concomitant]
     Active Substance: NIFEDIPINE
     Indication: CARDIAC FAILURE
     Route: 065
  16. HYDROCHOLORTHIAZIDE [Concomitant]
     Indication: DYSURIA
     Route: 065
  17. VITAMINS E [Concomitant]

REACTIONS (16)
  - Body height decreased [Unknown]
  - Arthralgia [Unknown]
  - Device malfunction [Unknown]
  - Ischaemia [Unknown]
  - Malaise [Unknown]
  - Abdominal pain upper [Unknown]
  - Constipation [Recovering/Resolving]
  - Gastric disorder [Unknown]
  - Injection site mass [Recovered/Resolved]
  - Weight decreased [Unknown]
  - Injection site nodule [Unknown]
  - Needle issue [Unknown]
  - Tremor [Not Recovered/Not Resolved]
  - Glycosylated haemoglobin increased [Recovering/Resolving]
  - Injection site haemorrhage [Unknown]
  - Headache [Unknown]
